FAERS Safety Report 6498176-8 (Version None)
Quarter: 2009Q4

REPORT INFORMATION
  Report Type: 
  Country: None (occurrence: None)
  Receive Date: 20091215
  Receipt Date: 20091203
  Transmission Date: 20100525
  Serious: Yes (Life-Threatening, Hospitalization)
  Sender: FDA-Public Use
  Company Number: JP-ELI_LILLY_AND_COMPANY-JP200912001007

PATIENT
  Age: 36 Year
  Sex: Male

DRUGS (6)
  1. ZYPREXA [Suspect]
     Indication: SCHIZOPHRENIA
     Dosage: 10 MG, DAILY (1/D)
     Route: 048
  2. ZYPREXA [Suspect]
     Dosage: 980 MG, UNK
     Route: 048
     Dates: start: 20091201, end: 20091201
  3. DEPAKENE [Concomitant]
     Dosage: 400 MG, DAILY (1/D)
     Route: 048
  4. VEGETAMIN A [Concomitant]
     Route: 048
  5. BENZALIN [Concomitant]
     Dosage: 15 MG, DAILY (1/D)
     Route: 048
  6. RISPERIDONE [Concomitant]
     Dosage: 2 MG, DAILY (1/D)
     Route: 048

REACTIONS (3)
  - ACUTE RESPIRATORY FAILURE [None]
  - DRUG TOXICITY [None]
  - OVERDOSE [None]
